FAERS Safety Report 19739891 (Version 1)
Quarter: 2021Q3

REPORT INFORMATION
  Report Type: Spontaneous
  Country: US (occurrence: US)
  Receive Date: 20210823
  Receipt Date: 20210823
  Transmission Date: 20211014
  Serious: Yes (Hospitalization)
  Sender: FDA-Public Use
  Company Number: NVSC2021US182615

PATIENT
  Sex: Female

DRUGS (2)
  1. ZOFRAN [Suspect]
     Active Substance: ONDANSETRON HYDROCHLORIDE
     Indication: PRODUCT USED FOR UNKNOWN INDICATION
     Dosage: UNK
     Route: 065
  2. VENCLEXTA [Suspect]
     Active Substance: VENETOCLAX
     Indication: ACUTE MYELOID LEUKAEMIA
     Dosage: 200 MG (100 MG?2)
     Route: 048
     Dates: start: 20201028

REACTIONS (6)
  - Bacteraemia [Unknown]
  - Nausea [Recovering/Resolving]
  - Constipation [Recovered/Resolved]
  - Pulse abnormal [Unknown]
  - Hypertension [Unknown]
  - Boredom [Unknown]
